FAERS Safety Report 8439244 (Version 2)
Quarter: 2013Q2

REPORT INFORMATION
  Report Type: Spontaneous
  Country: US (occurrence: None)
  Receive Date: 20120104
  Receipt Date: 20120508
  Transmission Date: 20140414
  Serious: Yes (Other)
  Sender: FDA-Public Use
  Company Number: 2011HGS-002823

PATIENT
  Age: 57 Year
  Sex: Female
  Weight: 67.13 kg

DRUGS (18)
  1. BENLYSTA [Suspect]
     Indication: SYSTEMIC LUPUS ERYTHEMATOSUS
     Route: 041
     Dates: start: 20110912
  2. PROZAC [Concomitant]
  3. PREDNISONE [Concomitant]
  4. METHOTREXATE [Concomitant]
  5. PLAQUENIL [Concomitant]
  6. FOLIC ACID [Concomitant]
  7. OXYCONTIN [Concomitant]
  8. TRIAMTERNE/HYDROCHLORATHIAZIDE (DYAZIDE) (HYDROCHLOROTHIAZIDE, TRIAMTERENE) [Concomitant]
  9. ADDERALL (OBETROL) (DEXAMFETAMINE SULFATE, AMFETAMINE SULFATE, DEXAMFETAMINER SACCHARATE, AMFETAMINE [Concomitant]
  10. CALCIUM CARBONATE [Concomitant]
  11. VITAMIN D (ERGOCALIFEROL) [Concomitant]
  12. PILOCARPINE HCL (PILOCARPINE HYDROCHLORIDE) (PILOCARPINE HYDROCHLORIDE) [Concomitant]
  13. FLONASE (FLUTICASONE PROPIONATE) (FLUTICASONE PROPIONATE) [Concomitant]
  14. LATISSE 0.03% (BIMATOPROST) (BIMATOPROST) [Concomitant]
  15. TRIAMCINOLONE ACETONIDE 0.1% (TRIAMCINOLONE ACETONIDE) (TRIAMCINOLONE ACETONIDE) [Concomitant]
  16. TRAZODONE HCL (TRAZODONE HYDROCHLORIDE) (TRAZODONE HYDROCHLORIDE) [Concomitant]
  17. RECLAST (ZOLEDRONIC ACID) (ZOLEODRONIC ACID) [Concomitant]
  18. VITAMIN D2 (ERGOCALCIFEROL) (ERGOCALCIFEROL) [Concomitant]

REACTIONS (2)
  - CONTUSION [None]
  - DRUG INEFFECTIVE [None]
